FAERS Safety Report 9672226 (Version 1)
Quarter: 2013Q4

REPORT INFORMATION
  Report Type: Spontaneous
  Country: FR (occurrence: None)
  Receive Date: 20131105
  Receipt Date: 20131105
  Transmission Date: 20140711
  Serious: Yes (Hospitalization)
  Sender: FDA-Public Use
  Company Number: FK201304824

PATIENT
  Age: 71 Year
  Sex: Male

DRUGS (6)
  1. PACLITAXEL [Suspect]
     Indication: SQUAMOUS CELL CARCINOMA OF LUNG
     Route: 042
     Dates: start: 20130822, end: 20130822
  2. CARBOPLATIN [Suspect]
     Indication: SQUAMOUS CELL CARCINOMA OF LUNG
     Route: 042
     Dates: start: 20130822, end: 20130822
  3. POLARAMINE [Suspect]
     Indication: PREMEDICATION
     Route: 042
     Dates: start: 20130822, end: 20130822
  4. AZANTAC [Suspect]
     Indication: PREMEDICATION
     Route: 042
     Dates: start: 20130822, end: 20130822
  5. METHYPREDNISOLONE [Suspect]
     Indication: PREMEDICATION
     Route: 042
     Dates: start: 20130822, end: 20130822
  6. ZOPHREN [Suspect]
     Indication: PREMEDICATION
     Route: 042
     Dates: start: 20130822, end: 20130822

REACTIONS (1)
  - Anaphylactic reaction [None]
